FAERS Safety Report 9717711 (Version 2)
Quarter: 2013Q4

REPORT INFORMATION
  Report Type: Spontaneous
  Country: US (occurrence: None)
  Receive Date: 20131125
  Receipt Date: 20131216
  Transmission Date: 20140711
  Serious: No
  Sender: FDA-Public Use
  Company Number: 2013P1021161

PATIENT
  Age: 27 Year
  Sex: Female

DRUGS (1)
  1. MYORISAN 40MG [Suspect]
     Route: 048
     Dates: start: 201307, end: 20131025

REACTIONS (3)
  - Pregnancy [None]
  - Abortion induced [None]
  - Exposure during pregnancy [None]
